FAERS Safety Report 8409138-5 (Version None)
Quarter: 2012Q2

REPORT INFORMATION
  Report Type: 
  Country: None (occurrence: None)
  Receive Date: 20120604
  Receipt Date: 20120524
  Transmission Date: 20120825
  Serious: Yes (Hospitalization)
  Sender: FDA-Public Use
  Company Number: IN-SANOFI-AVENTIS-2012SA037981

PATIENT
  Age: 25 Year
  Sex: Male

DRUGS (1)
  1. CHLOROQUINE PHOSPHATE [Suspect]
     Route: 065

REACTIONS (4)
  - LOSS OF CONSCIOUSNESS [None]
  - PO2 INCREASED [None]
  - METHAEMOGLOBINAEMIA [None]
  - CYANOSIS [None]
